FAERS Safety Report 18364248 (Version 1)
Quarter: 2020Q4

REPORT INFORMATION
  Report Type: Spontaneous
  Country: US (occurrence: US)
  Receive Date: 20201008
  Receipt Date: 20201008
  Transmission Date: 20210114
  Serious: Yes (Death)
  Sender: FDA-Public Use
  Company Number: None

PATIENT
  Age: 76 Year
  Sex: Male
  Weight: 107 kg

DRUGS (19)
  1. CALCIUM CARBONATE 1250 MG DAILY [Concomitant]
     Dates: start: 20201001, end: 20201005
  2. CHLORHEXIDINE MOUTHWASH 15 ML BID [Concomitant]
     Dates: start: 20200922, end: 20201005
  3. DEXAMETHASONE 10 MG IV Q6H [Concomitant]
     Dates: start: 20201005, end: 20201005
  4. PRECEDEX INFUSION [Concomitant]
     Dates: start: 20201005, end: 20201006
  5. ROBITUSSIN DM 10 ML PO Q6H [Concomitant]
     Dates: start: 20200929, end: 20201005
  6. DULERA 100-5 MCG/ACUTATION INHALER 2 PUFF BID [Concomitant]
     Dates: start: 20200919, end: 20201005
  7. NYSTATIN 100,000 UNIT/GRAM TOPICAL POWDER BID [Concomitant]
     Dates: start: 20200919, end: 20201005
  8. PROTONIX 40 MG IV Q12H [Concomitant]
     Dates: start: 20200925, end: 20201005
  9. MIDAZOLAM INFUSION TITRATED [Concomitant]
     Dates: start: 20200922, end: 20201006
  10. PHENOBARB 65 MG/ML 100 MG NIGHTLY IV [Concomitant]
     Dates: start: 20201005, end: 20201006
  11. FENTANYL 200 MCG IV X1 [Concomitant]
     Dates: start: 20201005
  12. PHENYTOIN 200 MG IV DAILY [Concomitant]
     Dates: start: 20200920, end: 20201005
  13. HEPARIN INFUSION [Concomitant]
     Dates: start: 20200925, end: 20201005
  14. REMDESIVIR. [Suspect]
     Active Substance: REMDESIVIR
     Indication: COVID-19
     Dates: start: 20200919, end: 20200923
  15. QUETIAPINE 25 MG PO BID [Concomitant]
     Dates: start: 20201002, end: 20201005
  16. ALBUTEROL HF 90 MCG IN HALER 2 PUFF 4X/DAILY [Concomitant]
     Dates: start: 20200929, end: 20201005
  17. MIRALAX 17G PO DAILY [Concomitant]
     Dates: start: 20200921, end: 20201005
  18. SENNA 2 TAB DAILY PO [Concomitant]
     Dates: start: 20200921, end: 20201005
  19. FENTAYL INFUSION [Concomitant]
     Dates: start: 20201005, end: 20201006

REACTIONS (3)
  - Hospice care [None]
  - Chronic obstructive pulmonary disease [None]
  - Gastrointestinal haemorrhage [None]

NARRATIVE: CASE EVENT DATE: 20201006
